FAERS Safety Report 13306240 (Version 3)
Quarter: 2017Q1

REPORT INFORMATION
  Report Type: Spontaneous
  Country: JP (occurrence: JP)
  Receive Date: 20170308
  Receipt Date: 20170325
  Transmission Date: 20170428
  Serious: No
  Sender: FDA-Public Use
  Company Number: JP-AMGEN-JPNSP2017032611

PATIENT
  Age: 70 Year
  Sex: Female

DRUGS (5)
  1. CHOLEBINE [Concomitant]
     Active Substance: COLESTILAN CHLORIDE
     Dosage: UNK
  2. REPATHA [Suspect]
     Active Substance: EVOLOCUMAB
     Indication: TYPE IIA HYPERLIPIDAEMIA
     Dosage: 140 MG, UNK
     Route: 058
     Dates: start: 20170222
  3. LIPITOR [Concomitant]
     Active Substance: ATORVASTATIN CALCIUM
     Dosage: 10 MG, UNK
     Dates: start: 20160322, end: 20160404
  4. EPADEL [Concomitant]
     Active Substance: ICOSAPENT
     Dosage: UNK
  5. MEVALOTIN [Concomitant]
     Active Substance: PRAVASTATIN SODIUM
     Dosage: UNK

REACTIONS (5)
  - Lymphocyte count abnormal [Unknown]
  - Drug ineffective [Unknown]
  - Eosinophil count abnormal [Unknown]
  - Neutrophil count decreased [Unknown]
  - White blood cell count decreased [Unknown]
